FAERS Safety Report 5605934-8 (Version None)
Quarter: 2008Q1

REPORT INFORMATION
  Report Type: 
  Country: None (occurrence: None)
  Receive Date: 20080123
  Receipt Date: 20080123
  Transmission Date: 20080703
  Serious: No
  Sender: FDA-Public Use
  Company Number: None

PATIENT
  Age: 42 Year
  Sex: Female
  Weight: 74.8435 kg

DRUGS (2)
  1. LEXAPRO [Suspect]
     Indication: DEPRESSION
     Dosage: 20MG ONE A DAY PO
     Route: 048
  2. EFFEXOR [Suspect]
     Indication: DEPRESSION
     Dosage: 75MG ONE A DAY PO
     Route: 048

REACTIONS (7)
  - ABNORMAL BEHAVIOUR [None]
  - ALCOHOLISM [None]
  - AMNESIA [None]
  - DRUG EFFECT DECREASED [None]
  - MOOD SWINGS [None]
  - MUSCLE TWITCHING [None]
  - SUICIDAL IDEATION [None]
